FAERS Safety Report 9969396 (Version 1)
Quarter: 2014Q1

REPORT INFORMATION
  Report Type: Spontaneous
  Country: US (occurrence: US)
  Receive Date: 20140306
  Receipt Date: 20140306
  Transmission Date: 20141002
  Serious: No
  Sender: FDA-Public Use
  Company Number: US-009507513-1403USA001943

PATIENT
  Age: 59 Year
  Sex: Male

DRUGS (3)
  1. PEGINTRON [Suspect]
     Indication: HEPATITIS C
     Dosage: 0.5 ML, QW, REDIPEN
     Route: 058
     Dates: start: 20140224
  2. REBETOL [Suspect]
     Indication: HEPATITIS C
     Dosage: 200 MG, DAILY
     Route: 048
     Dates: start: 20140224
  3. TELAPREVIR [Suspect]
     Indication: HEPATITIS C
     Dosage: 3 DF, BID
     Route: 048
     Dates: start: 20140224

REACTIONS (8)
  - Nasal congestion [Unknown]
  - Feeling cold [Unknown]
  - Epistaxis [Unknown]
  - Sinus disorder [Unknown]
  - Insomnia [Unknown]
  - Dyspnoea [Unknown]
  - Pyrexia [Unknown]
  - Poor quality sleep [Unknown]
